FAERS Safety Report 21207308 (Version 6)
Quarter: 2024Q3

REPORT INFORMATION
  Report Type: Report from Study
  Country: JP (occurrence: JP)
  Receive Date: 20220812
  Receipt Date: 20240717
  Transmission Date: 20241017
  Serious: No
  Sender: AEGERION
  Company Number: JP-Recordati Rare Diseases Japan-JUXJ20190003

PATIENT

DRUGS (21)
  1. JUXTAPID [Suspect]
     Active Substance: LOMITAPIDE MESYLATE
     Indication: Type IIa hyperlipidaemia
     Dosage: THE PATIENT TOOK JUXTAPID 2 HOURS AFTER DINNER. (5 MG,1 IN 1 D)
     Route: 048
     Dates: start: 20181128, end: 20190713
  2. JUXTAPID [Suspect]
     Active Substance: LOMITAPIDE MESYLATE
     Dosage: THE PATEINT TOOK JUXTAPID 2 HOURS AFTER DINNER. WITHDRAWN ONCE OR TWICE A WEEK BY PATIENT DUE TO DIA
     Route: 048
     Dates: start: 20190128
  3. CARVEDILOL [Concomitant]
     Active Substance: CARVEDILOL
     Indication: Acute myocardial infarction
     Dosage: 2.5 MILLIGRAM
     Route: 048
     Dates: start: 20171025
  4. CARVEDILOL [Concomitant]
     Active Substance: CARVEDILOL
     Indication: Myocardial infarction
  5. MAGNESIUM OXIDE [Concomitant]
     Active Substance: MAGNESIUM OXIDE
     Indication: Constipation
     Dosage: 330 MG, PATIENT CONTROLLED
     Route: 065
     Dates: start: 20180915
  6. ZETIA [Concomitant]
     Active Substance: EZETIMIBE
     Indication: Hypercholesterolaemia
     Dosage: 10 MG, 1 IN 2 D
     Route: 048
     Dates: start: 20161012
  7. REPATHA [Concomitant]
     Active Substance: EVOLOCUMAB
     Indication: Hypercholesterolaemia
     Dosage: 420 MG, TWICE A MONTH
     Route: 058
     Dates: start: 20161109
  8. PITAVASTATIN CALCIUM [Concomitant]
     Active Substance: PITAVASTATIN CALCIUM
     Indication: Hypercholesterolaemia
     Dosage: 1 MG, 1 IN 2 D
     Route: 048
     Dates: start: 20171125
  9. METHYLCOBALAMIN [Concomitant]
     Active Substance: METHYLCOBALAMIN
     Indication: Neuropathy peripheral
     Dosage: 1500 ?G, 1 IN 8 HR
     Route: 048
     Dates: start: 20180428
  10. BILASTINE [Concomitant]
     Active Substance: BILASTINE
     Indication: Seasonal allergy
     Dosage: 20 MG, QD
     Route: 065
     Dates: start: 20190216, end: 20190614
  11. POSTERISAN [Concomitant]
     Indication: Haemorrhoids
     Dosage: 2 G, QD
     Route: 054
     Dates: start: 20190413
  12. ASPIRIN\LANSOPRAZOLE [Concomitant]
     Active Substance: ASPIRIN\LANSOPRAZOLE
     Indication: Acute myocardial infarction
     Dosage: 1 DF, QD
     Route: 048
     Dates: start: 20171027, end: 20201225
  13. ASPIRIN\LANSOPRAZOLE [Concomitant]
     Active Substance: ASPIRIN\LANSOPRAZOLE
     Indication: Myocardial infarction
  14. CLOSTRIDIUM BUTYRICUM SPORES STRAIN M-55 [Concomitant]
     Active Substance: CLOSTRIDIUM BUTYRICUM SPORES STRAIN M-55
     Indication: Diarrhoea
     Dosage: 1 UNK, TID
     Route: 048
     Dates: start: 20200620
  15. ALESION [Concomitant]
     Active Substance: EPINASTINE HYDROCHLORIDE
     Indication: Seasonal allergy
     Dosage: UNK, PRN
     Dates: start: 20201017, end: 20210313
  16. ASCORBIC ACID;CALCIUM PANTOTHENATE [Concomitant]
     Indication: Haemorrhage prophylaxis
     Dosage: 1 GRAM, TID
     Route: 048
     Dates: start: 20201017
  17. CLOPIDOGREL BISULFATE [Concomitant]
     Active Substance: CLOPIDOGREL BISULFATE
     Indication: Gastric polyps
     Dosage: 75 MILLIGRAM, QD
     Route: 048
     Dates: start: 20210515
  18. CLOPIDOGREL BISULFATE [Concomitant]
     Active Substance: CLOPIDOGREL BISULFATE
     Indication: Myocardial infarction
  19. ASPIRIN\VONOPRAZAN FUMARATE [Concomitant]
     Active Substance: ASPIRIN\VONOPRAZAN FUMARATE
     Indication: Myocardial infarction
     Dosage: 100-10
     Route: 048
     Dates: start: 20201226, end: 20210514
  20. NERIZA [Concomitant]
     Indication: Haemorrhoids
     Dosage: UNK, BID
     Dates: start: 20211218, end: 20220304
  21. AMLODIPINE BESYLATE [Concomitant]
     Active Substance: AMLODIPINE BESYLATE
     Indication: Hypertension
     Dosage: 2.5 MILLIGRAM, QD
     Route: 048
     Dates: start: 20221015

REACTIONS (7)
  - Liver disorder [Recovering/Resolving]
  - Hepatic steatosis [Not Recovered/Not Resolved]
  - Conjunctivitis allergic [Recovered/Resolved]
  - Diarrhoea [Recovering/Resolving]
  - Diarrhoea [Recovering/Resolving]
  - Diarrhoea [Not Recovered/Not Resolved]
  - Constipation [Not Recovered/Not Resolved]

NARRATIVE: CASE EVENT DATE: 20190112
